FAERS Safety Report 5519274-9 (Version None)
Quarter: 2007Q4

REPORT INFORMATION
  Report Type: 
  Country: None (occurrence: None)
  Receive Date: 20071116
  Receipt Date: 20071106
  Transmission Date: 20080405
  Serious: Yes (Other)
  Sender: FDA-Public Use
  Company Number: ES-AMGEN-US252699

PATIENT
  Age: 31 Year
  Sex: Female

DRUGS (1)
  1. ENBREL [Suspect]
     Indication: RHEUMATOID ARTHRITIS
     Dosage: LYOPHILIZED 25 MG 2 TIMES PER WEEK
     Route: 058
     Dates: start: 20070101

REACTIONS (1)
  - DRUG EFFECT DECREASED [None]
